FAERS Safety Report 20463235 (Version 1)
Quarter: 2022Q1

REPORT INFORMATION
  Report Type: Spontaneous
  Country: None (occurrence: US)
  Receive Date: 20220211
  Receipt Date: 20220211
  Transmission Date: 20220423
  Serious: Yes (Hospitalization, Other)
  Sender: FDA-Public Use
  Company Number: US-Sunstar Americas Inc.-2125818

PATIENT
  Sex: Male
  Weight: 110.7 kg

DRUGS (27)
  1. PAROEX [Suspect]
     Active Substance: CHLORHEXIDINE GLUCONATE
     Indication: Pharyngitis
     Route: 002
     Dates: end: 20201023
  2. HYDRALAZINE [Concomitant]
     Active Substance: HYDRALAZINE HYDROCHLORIDE
     Route: 002
     Dates: start: 20201004, end: 20201005
  3. MAGNESIUM CITRATE [Concomitant]
     Active Substance: MAGNESIUM CITRATE
     Route: 048
     Dates: start: 20201005, end: 20201005
  4. METOCLOPRAMIDE [Concomitant]
     Active Substance: METOCLOPRAMIDE
     Route: 042
     Dates: start: 20201004, end: 20201005
  5. METOLAZONE [Concomitant]
     Active Substance: METOLAZONE
     Route: 002
     Dates: start: 20201004, end: 20201004
  6. MIDAZOLAM [Concomitant]
     Active Substance: MIDAZOLAM
     Route: 030
     Dates: start: 20201001, end: 20201004
  7. MONTELUKAST [Concomitant]
     Active Substance: MONTELUKAST SODIUM
     Route: 002
     Dates: start: 20201002, end: 20201005
  8. SODIUM CHLORIDE [Concomitant]
     Active Substance: SODIUM CHLORIDE
     Route: 042
     Dates: start: 20201004, end: 20201004
  9. SUCCINYLCHOLINE CHLORIDE [Concomitant]
     Active Substance: SUCCINYLCHOLINE CHLORIDE
     Route: 042
     Dates: start: 20201001, end: 20201001
  10. FUROSEMIDE [Concomitant]
     Active Substance: FUROSEMIDE
     Route: 042
     Dates: start: 20201001, end: 20201004
  11. LACTATED RINGERS AND DEXTROSE SOLUTION [Concomitant]
     Active Substance: CALCIUM CHLORIDE\DEXTROSE\DEXTROSE MONOHYDRATE\POTASSIUM CHLORIDE\SODIUM CHLORIDE\SODIUM LACTATE
     Dates: start: 20201005, end: 20201005
  12. DEXTROSE MONOHYDRATE [Concomitant]
     Active Substance: DEXTROSE MONOHYDRATE
     Route: 042
     Dates: start: 20201003, end: 20201003
  13. POTASSIUM CHLORIDE IN DEXTROSE [Concomitant]
     Active Substance: DEXTROSE\DEXTROSE MONOHYDRATE\POTASSIUM CHLORIDE
     Route: 042
     Dates: start: 20201002, end: 20201002
  14. ETOMIDATE [Concomitant]
     Active Substance: ETOMIDATE
     Route: 042
     Dates: start: 20201001, end: 20201001
  15. FAMOTIDINE [Concomitant]
     Active Substance: FAMOTIDINE
     Route: 002
     Dates: start: 20201005, end: 20201005
  16. FENTANYL [Concomitant]
     Active Substance: FENTANYL
     Route: 042
     Dates: start: 20201001, end: 20201001
  17. CASTOR OIL [Concomitant]
     Active Substance: CASTOR OIL
     Route: 048
     Dates: start: 20201005, end: 20201005
  18. CISATRACURIUM [Concomitant]
     Active Substance: CISATRACURIUM
     Route: 042
     Dates: start: 20201001, end: 20201001
  19. BISACODYL [Concomitant]
     Active Substance: BISACODYL
     Route: 054
     Dates: start: 20201005, end: 20201005
  20. AMLODIPINE [Concomitant]
     Active Substance: AMLODIPINE BESYLATE
     Route: 002
     Dates: start: 20201003, end: 20201005
  21. ARTIFICIAL TEARS [Concomitant]
     Active Substance: GLYCERIN\HYPROMELLOSES\POLYETHYLENE GLYCOL 400
     Route: 047
     Dates: start: 20201001, end: 20201005
  22. ENEMA MINERAL OIL [Concomitant]
     Active Substance: MINERAL OIL
     Route: 054
     Dates: start: 20201005, end: 20201005
  23. CISATRACURIUM BESYLATE [Concomitant]
     Active Substance: CISATRACURIUM BESYLATE
     Route: 042
     Dates: start: 20201001, end: 20201005
  24. HYDRALAZINE HYDROCHLORIDE [Concomitant]
     Active Substance: HYDRALAZINE HYDROCHLORIDE
     Route: 042
     Dates: start: 20201001, end: 20201004
  25. FENTANYL CITRATE [Concomitant]
     Active Substance: FENTANYL CITRATE
     Route: 042
     Dates: start: 20201002, end: 20201005
  26. PROPOFOL [Concomitant]
     Active Substance: PROPOFOL
     Route: 042
     Dates: start: 20201001, end: 20201005
  27. LOKELMA [Concomitant]
     Active Substance: SODIUM ZIRCONIUM CYCLOSILICATE
     Dates: start: 20201004, end: 20201004

REACTIONS (5)
  - Respiratory failure [Unknown]
  - COVID-19 [Unknown]
  - Burkholderia test positive [Unknown]
  - Respiratory rate decreased [Unknown]
  - Endotracheal intubation [Unknown]

NARRATIVE: CASE EVENT DATE: 20200926
